FAERS Safety Report 6637965-3 (Version None)
Quarter: 2010Q1

REPORT INFORMATION
  Report Type: 
  Country: None (occurrence: None)
  Receive Date: 20100317
  Receipt Date: 20100315
  Transmission Date: 20100710
  Serious: Yes (Other)
  Sender: FDA-Public Use
  Company Number: CHPA2010GB02279

PATIENT
  Sex: Female

DRUGS (5)
  1. SCOPOLAMINE [Suspect]
     Indication: SALIVARY HYPERSECRETION
     Dosage: 1 DF, Q72H
     Route: 062
     Dates: start: 20091101
  2. SCOPOLAMINE [Suspect]
     Dosage: 2 DF, UNK
     Route: 062
     Dates: end: 20091201
  3. BENDROFLUMETHIAZIDE [Concomitant]
     Indication: BLOOD PRESSURE
     Dosage: 2.5 MG, UNK
     Dates: start: 20100101
  4. AMLODIPINE [Concomitant]
     Dosage: 5 MG, UNK
     Dates: start: 20100201
  5. EZETROL [Concomitant]
     Indication: BLOOD CHOLESTEROL
     Dosage: 10 MG, UNK
     Dates: start: 20100201

REACTIONS (12)
  - APPLICATION SITE IRRITATION [None]
  - DRUG INEFFECTIVE FOR UNAPPROVED INDICATION [None]
  - GLOSSODYNIA [None]
  - HALLUCINATION [None]
  - HERNIA [None]
  - MALAISE [None]
  - MENTAL DISORDER [None]
  - OVERDOSE [None]
  - PSYCHOTIC DISORDER [None]
  - SALIVARY GLAND DISORDER [None]
  - TONGUE DISORDER [None]
  - WRONG TECHNIQUE IN DRUG USAGE PROCESS [None]
